FAERS Safety Report 23429530 (Version 5)
Quarter: 2024Q4

REPORT INFORMATION
  Report Type: Spontaneous
  Country: US (occurrence: US)
  Receive Date: 20240122
  Receipt Date: 20241205
  Transmission Date: 20250114
  Serious: Yes (Death, Other)
  Sender: PFIZER
  Company Number: US-PFIZER INC-202300211642

PATIENT
  Age: 76 Year
  Sex: Male

DRUGS (1)
  1. VYNDAMAX [Suspect]
     Active Substance: TAFAMIDIS
     Indication: Amyloidosis
     Dosage: 61 MG

REACTIONS (5)
  - Dementia with Lewy bodies [Fatal]
  - Parkinson^s disease [Not Recovered/Not Resolved]
  - Amyloidosis [Not Recovered/Not Resolved]
  - Paranoia [Not Recovered/Not Resolved]
  - Product prescribing issue [Unknown]
